FAERS Safety Report 10257878 (Version 1)
Quarter: 2014Q2

REPORT INFORMATION
  Report Type: Spontaneous
  Country: US (occurrence: US)
  Receive Date: 20140625
  Receipt Date: 20140625
  Transmission Date: 20141212
  Serious: Yes (Hospitalization)
  Sender: FDA-Public Use
  Company Number: US-BRISTOL-MYERS SQUIBB COMPANY-21050323

PATIENT
  Age: 21 Month
  Sex: Male

DRUGS (1)
  1. ABILIFY [Suspect]
     Dosage: PILLS OR CAPSULES

REACTIONS (1)
  - Accidental exposure to product by child [Unknown]
